FAERS Safety Report 26085540 (Version 1)
Quarter: 2025Q4

REPORT INFORMATION
  Report Type: Report from Study
  Country: US (occurrence: US)
  Receive Date: 20251125
  Receipt Date: 20251125
  Transmission Date: 20260119
  Serious: Yes (Other)
  Sender: ALEXION PHARMACEUTICALS
  Company Number: US-AstraZeneca-CH-00997480A

PATIENT
  Age: 82 Year
  Sex: Male

DRUGS (2)
  1. ACALABRUTINIB [Suspect]
     Active Substance: ACALABRUTINIB
     Indication: Chronic lymphocytic leukaemia
     Dosage: 100 MILLIGRAM, BID
     Dates: start: 20251022
  2. VENCLEXTA [Concomitant]
     Active Substance: VENETOCLAX
     Route: 065

REACTIONS (3)
  - Neuropathy peripheral [Unknown]
  - Rash [Unknown]
  - Fall [Unknown]

NARRATIVE: CASE EVENT DATE: 20251118
